FAERS Safety Report 13818311 (Version 1)
Quarter: 2017Q3

REPORT INFORMATION
  Report Type: Spontaneous
  Country: US (occurrence: US)
  Receive Date: 20170731
  Receipt Date: 20170731
  Transmission Date: 20171127
  Serious: No
  Sender: FDA-Public Use
  Company Number: US-ROCHE-722838

PATIENT
  Age: 64 Year
  Sex: Female
  Weight: 54.4 kg

DRUGS (1)
  1. BONIVA [Suspect]
     Active Substance: IBANDRONATE SODIUM
     Indication: OSTEOPOROSIS POSTMENOPAUSAL
     Route: 042

REACTIONS (2)
  - Wrong technique in product usage process [Unknown]
  - Inflammation [Not Recovered/Not Resolved]

NARRATIVE: CASE EVENT DATE: 20100816
